FAERS Safety Report 10801275 (Version 1)
Quarter: 2015Q1

REPORT INFORMATION
  Report Type: Spontaneous
  Country: DK (occurrence: DK)
  Receive Date: 20150217
  Receipt Date: 20150217
  Transmission Date: 20150721
  Serious: Yes (Hospitalization)
  Sender: FDA-Public Use
  Company Number: PHHY2015DK014740

PATIENT
  Age: 27 Year
  Sex: Female

DRUGS (2)
  1. MALONETTA [Suspect]
     Active Substance: ETHINYL ESTRADIOL\LEVONORGESTREL
     Indication: DYSMENORRHOEA
     Dosage: 1 DF, UNK
     Route: 048
     Dates: start: 20120112
  2. DIURAL [Concomitant]
     Active Substance: FUROSEMIDE
     Indication: PRODUCT USED FOR UNKNOWN INDICATION
     Route: 065

REACTIONS (16)
  - Cerebral venous thrombosis [Recovered/Resolved with Sequelae]
  - Nausea [Recovered/Resolved]
  - Headache [Unknown]
  - Palatal palsy [Recovered/Resolved]
  - Disturbance in attention [Not Recovered/Not Resolved]
  - Papilloedema [Unknown]
  - Dizziness [Recovered/Resolved]
  - Hypoacusis [Unknown]
  - Memory impairment [Not Recovered/Not Resolved]
  - Photophobia [Unknown]
  - Contraindicated drug administered [Recovered/Resolved]
  - Vision blurred [Not Recovered/Not Resolved]
  - Hyperacusis [Not Recovered/Not Resolved]
  - Vomiting [Unknown]
  - Visual impairment [Not Recovered/Not Resolved]
  - Benign intracranial hypertension [Unknown]

NARRATIVE: CASE EVENT DATE: 20120112
